FAERS Safety Report 10041523 (Version 1)
Quarter: 2014Q1

REPORT INFORMATION
  Report Type: Spontaneous
  Country: DE (occurrence: None)
  Receive Date: 20140325
  Receipt Date: 20140325
  Transmission Date: 20141002
  Serious: Yes (Death, Life-Threatening)
  Sender: FDA-Public Use
  Company Number: FK201400940

PATIENT
  Age: 70 Year
  Sex: Male

DRUGS (7)
  1. PROPRANOLOL HYDROCHLORIDE [Suspect]
     Indication: PRODUCT USED FOR UNKNOWN INDICATION
  2. NEXAVAR [Suspect]
     Indication: HEPATIC CANCER
     Dates: start: 20120110
  3. GLIBENCLAMIDE [Suspect]
     Indication: TYPE 2 DIABETES MELLITUS
  4. RAMIPRIL (RAMIPRIL) [Suspect]
     Indication: PRODUCT USED FOR UNKNOWN INDICATION
  5. TORASEMIDE (TORASEMIDE) [Suspect]
     Indication: PRODUCT USED FOR UNKNOWN INDICATION
  6. AMLODIPINE (AMLODIPINE) [Suspect]
     Indication: PRODUCT USED FOR UNKNOWN INDICATION
  7. NOVAMINSULFON (METAMIZOLE SODIUM) [Suspect]
     Indication: PRODUCT USED FOR UNKNOWN INDICATION

REACTIONS (6)
  - Portal vein thrombosis [None]
  - Hepatorenal syndrome [None]
  - Hepatic encephalopathy [None]
  - Hepatic cirrhosis [None]
  - Drug interaction [None]
  - Hypoglycaemia [None]
